FAERS Safety Report 9525080 (Version 2)
Quarter: 2013Q4

REPORT INFORMATION
  Report Type: Spontaneous
  Country: IE (occurrence: IE)
  Receive Date: 20130916
  Receipt Date: 20131015
  Transmission Date: 20140711
  Serious: Yes (Hospitalization)
  Sender: FDA-Public Use
  Company Number: IE-TEVA-430638ISR

PATIENT
  Age: 56 Year
  Sex: 0

DRUGS (4)
  1. SERETRAL [Suspect]
     Dosage: 200 MILLIGRAM DAILY; TAKEN AT NIGHT INSTEAD OF MORNING
  2. ZOLPIDEM TARTRATE TEVA [Suspect]
     Dosage: 10 MILLIGRAM DAILY; TAKEN IN THE MORNING INSTEAD OF AT NIGHT
  3. IXPRIM [Concomitant]
  4. PREMPAK [Concomitant]

REACTIONS (4)
  - Inappropriate schedule of drug administration [Unknown]
  - Disorientation [Unknown]
  - Road traffic accident [Unknown]
  - Product substitution issue [Unknown]
